FAERS Safety Report 6852267-8 (Version None)
Quarter: 2010Q3

REPORT INFORMATION
  Report Type: 
  Country: None (occurrence: None)
  Receive Date: 20100717
  Receipt Date: 20071108
  Transmission Date: 20110219
  Serious: No
  Sender: FDA-Public Use
  Company Number: US-PFIZER INC-2007095708

PATIENT
  Sex: Female
  Weight: 63.636 kg

DRUGS (6)
  1. CHANTIX [Suspect]
     Indication: SMOKING CESSATION THERAPY
     Dates: start: 20070101
  2. CALCIUM [Concomitant]
  3. GARLIC [Concomitant]
  4. TOPROL-XL [Concomitant]
  5. DRUG, UNSPECIFIED [Concomitant]
  6. LINSEED OIL [Concomitant]

REACTIONS (5)
  - ABDOMINAL PAIN UPPER [None]
  - ABNORMAL DREAMS [None]
  - DYSPEPSIA [None]
  - HUNGER [None]
  - NAUSEA [None]
